FAERS Safety Report 6444572-4 (Version None)
Quarter: 2009Q4

REPORT INFORMATION
  Report Type: 
  Country: None (occurrence: None)
  Receive Date: 20091118
  Receipt Date: 20090914
  Transmission Date: 20100525
  Serious: No
  Sender: FDA-Public Use
  Company Number: A0807253A

PATIENT
  Sex: Female

DRUGS (4)
  1. COREG CR [Suspect]
     Indication: HYPERTENSION
     Dosage: 10MG PER DAY
     Route: 048
     Dates: start: 20090519
  2. CARVEDILOL PHOSPHATE [Suspect]
     Indication: HYPERTENSION
     Route: 048
  3. THYROID MEDICATION [Concomitant]
  4. UNKNOWN MEDICATION [Concomitant]

REACTIONS (5)
  - CANDIDIASIS [None]
  - DRY EYE [None]
  - DRY MOUTH [None]
  - NASAL CONGESTION [None]
  - SINUS CONGESTION [None]
